FAERS Safety Report 15328097 (Version 1)
Quarter: 2018Q3

REPORT INFORMATION
  Report Type: Spontaneous
  Country: GB (occurrence: GB)
  Receive Date: 20180828
  Receipt Date: 20180828
  Transmission Date: 20181010
  Serious: Yes (Other)
  Sender: FDA-Public Use
  Company Number: GB-BIOGEN-2017BI00397599

PATIENT
  Sex: Male

DRUGS (2)
  1. LEMTRAVA [Concomitant]
     Indication: MULTIPLE SCLEROSIS
     Route: 065
  2. FAMPYRA [Suspect]
     Active Substance: DALFAMPRIDINE
     Indication: MULTIPLE SCLEROSIS
     Route: 048
     Dates: start: 20161003, end: 20171027

REACTIONS (2)
  - Drug ineffective [Unknown]
  - Neoplasm malignant [Unknown]
